FAERS Safety Report 14725488 (Version 2)
Quarter: 2018Q4

REPORT INFORMATION
  Report Type: Spontaneous
  Country: GB (occurrence: GB)
  Receive Date: 20180405
  Receipt Date: 20181111
  Transmission Date: 20190204
  Serious: Yes (Death, Other)
  Sender: FDA-Public Use
  Company Number: GB-BAXTER-2018BAX009910

PATIENT
  Age: 67 Year
  Sex: Male

DRUGS (7)
  1. TYGACIL [Suspect]
     Active Substance: TIGECYCLINE
     Indication: ENTEROCOCCAL INFECTION
     Dosage: 100 MG, UNK
     Route: 065
  2. FLUCONAZOLE 2 MG/ML SOLUTION FOR INFUSION [Suspect]
     Active Substance: FLUCONAZOLE
     Indication: ENTEROCOCCAL INFECTION
     Dosage: UNK
     Route: 065
  3. COLISTIN [Suspect]
     Active Substance: COLISTIN
     Indication: SEPSIS
     Dosage: TDS
     Route: 065
  4. TYGACIL [Suspect]
     Active Substance: TIGECYCLINE
     Indication: SEPSIS
     Route: 065
  5. FLUCONAZOLE 2 MG/ML SOLUTION FOR INFUSION [Suspect]
     Active Substance: FLUCONAZOLE
     Indication: SEPSIS
     Dosage: UNK
     Route: 065
  6. COLISTIN [Suspect]
     Active Substance: COLISTIN
     Indication: ENTEROCOCCAL INFECTION
     Route: 065
  7. AMIKACIN SULFATE. [Suspect]
     Active Substance: AMIKACIN SULFATE
     Indication: BILIARY SEPSIS
     Route: 065

REACTIONS (4)
  - Drug ineffective [Fatal]
  - Multiple organ dysfunction syndrome [Fatal]
  - Abdominal adhesions [Unknown]
  - Gallstone ileus [Unknown]

NARRATIVE: CASE EVENT DATE: 20180301
